FAERS Safety Report 4599846-9 (Version None)
Quarter: 2005Q1

REPORT INFORMATION
  Report Type: 
  Country: None (occurrence: None)
  Receive Date: 20050303
  Receipt Date: 20050303
  Transmission Date: 20050727
  Serious: Yes (Death)
  Sender: FDA-Public Use
  Company Number: None

PATIENT
  Age: 84 Year
  Sex: Male
  Weight: 76.1136 kg

DRUGS (3)
  1. ADRIAMYCIN PFS [Suspect]
     Indication: BREAST CANCER
     Dosage: 115 MG IV X 1
     Dates: start: 20050210
  2. CYTOXAN [Suspect]
     Indication: BREAST CANCER
     Dosage: 1152 MG IV X 1
     Dates: start: 20050210
  3. NEULASTA [Suspect]
     Dosage: 6 MG SQ X 1
     Dates: start: 20050211

REACTIONS (11)
  - ACUTE MYOCARDIAL INFARCTION [None]
  - BLOOD URIC ACID INCREASED [None]
  - DEHYDRATION [None]
  - FEBRILE NEUTROPENIA [None]
  - LETHARGY [None]
  - LUNG INFILTRATION [None]
  - NAUSEA [None]
  - RENAL FAILURE [None]
  - RESPIRATORY DISORDER [None]
  - SEPSIS [None]
  - SHOCK [None]
